FAERS Safety Report 5621758-X (Version None)
Quarter: 2008Q1

REPORT INFORMATION
  Report Type: 
  Country: None (occurrence: None)
  Receive Date: 20080114
  Receipt Date: 20070523
  Transmission Date: 20080703
  Serious: Yes (Other)
  Sender: FDA-Public Use
  Company Number: A03200703288

PATIENT
  Age: 68 Year
  Sex: Male
  Weight: 90.7194 kg

DRUGS (10)
  1. PLAVIX [Suspect]
     Indication: STENT PLACEMENT
     Dosage: 75 MG QD - ORAL
     Route: 048
     Dates: start: 20061201
  2. ACETYLSALICYLIC ACID SRT [Concomitant]
  3. NIFEDIPINE [Concomitant]
  4. EZETIMIBE+SIMVASTATIN [Concomitant]
  5. POTASSIUM CHLORIDE [Concomitant]
  6. METOPROLOL SUCCINATE [Concomitant]
  7. FOSINOPRIL SODIUM [Concomitant]
  8. METFORMIN HCL [Concomitant]
  9. VITAMINS [Concomitant]
  10. LANSOPRAZOLE [Concomitant]

REACTIONS (9)
  - ABDOMINAL PAIN UPPER [None]
  - ARTHRALGIA [None]
  - DIARRHOEA [None]
  - FLATULENCE [None]
  - HEADACHE [None]
  - MELAENA [None]
  - RASH [None]
  - STOMATITIS [None]
  - URINE OUTPUT DECREASED [None]
